FAERS Safety Report 5391743-4 (Version None)
Quarter: 2007Q3

REPORT INFORMATION
  Report Type: 
  Country: None (occurrence: None)
  Receive Date: 20070717
  Receipt Date: 20070705
  Transmission Date: 20080115
  Serious: Yes (Death)
  Sender: FDA-Public Use
  Company Number: 2007US001612

PATIENT
  Age: 78 Year
  Sex: Male

DRUGS (2)
  1. AMBISOME [Suspect]
     Indication: PNEUMONIA
     Dosage: 100 MG, UID/QD, IV DRIP
     Route: 041
     Dates: start: 20070610
  2. MAXIPIME [Concomitant]

REACTIONS (2)
  - CONDITION AGGRAVATED [None]
  - RESPIRATORY FAILURE [None]
